FAERS Safety Report 4280083-2 (Version None)
Quarter: 2004Q1

REPORT INFORMATION
  Report Type: 
  Country: None (occurrence: None)
  Receive Date: 20040126
  Receipt Date: 20040120
  Transmission Date: 20041129
  Serious: Yes (Other)
  Sender: FDA-Public Use
  Company Number: 2004195115JP

PATIENT
  Age: 59 Year
  Sex: Male

DRUGS (1)
  1. SULFASALAZINE [Suspect]
     Indication: COLITIS ULCERATIVE
     Dosage: 2 G/DAY, ORAL
     Route: 048

REACTIONS (2)
  - LYMPHOCYTE STIMULATION TEST POSITIVE [None]
  - MONONUCLEOSIS SYNDROME [None]
